FAERS Safety Report 4861627-6 (Version None)
Quarter: 2005Q4

REPORT INFORMATION
  Report Type: 
  Country: None (occurrence: None)
  Receive Date: 20051216
  Receipt Date: 20051206
  Transmission Date: 20060501
  Serious: Yes (Hospitalization, Other)
  Sender: FDA-Public Use
  Company Number: 2005165544

PATIENT
  Age: 88 Year
  Sex: Female
  Weight: 57.6068 kg

DRUGS (4)
  1. AROMASIN [Suspect]
     Indication: BREAST CANCER FEMALE
     Dosage: 25 MG (25 MG, DAILY, EVERY DAY), ORAL
     Route: 048
     Dates: start: 20050622
  2. GOLYTELY [Suspect]
     Indication: INTESTINAL OBSTRUCTION
     Dosage: 8 OZ (DAILY, EVERY DAY)
  3. ATENOLOL [Suspect]
     Indication: BLOOD PRESSURE
     Dosage: 37.5 MG (25 MG, TID, EVERY DAY)
  4. REGLAN [Suspect]
     Indication: ILL-DEFINED DISORDER

REACTIONS (3)
  - INTESTINAL OBSTRUCTION [None]
  - LOSS OF CONSCIOUSNESS [None]
  - VOMITING [None]
